FAERS Safety Report 12163691 (Version 1)
Quarter: 2016Q1

REPORT INFORMATION
  Report Type: Spontaneous
  Country: IL (occurrence: IL)
  Receive Date: 20160309
  Receipt Date: 20160309
  Transmission Date: 20160526
  Serious: Yes (Other)
  Sender: FDA-Public Use
  Company Number: IL-NOVOPROD-475947

PATIENT
  Age: 40 Year
  Sex: Male

DRUGS (1)
  1. LEVEMIR [Suspect]
     Active Substance: INSULIN DETEMIR
     Indication: TYPE 2 DIABETES MELLITUS
     Dosage: 28 U, BID
     Route: 058
     Dates: start: 20151220, end: 20160103

REACTIONS (4)
  - Blood glucose increased [Not Recovered/Not Resolved]
  - Injection site erythema [Recovered/Resolved]
  - Pancreatitis [Unknown]
  - Injection site rash [Recovered/Resolved]

NARRATIVE: CASE EVENT DATE: 20151223
